APPROVED DRUG PRODUCT: IDARUBICIN HYDROCHLORIDE
Active Ingredient: IDARUBICIN HYDROCHLORIDE
Strength: 20MG/20ML (1MG/ML)
Dosage Form/Route: SOLUTION;INTRAVENOUS
Application: A065288 | Product #003 | TE Code: AP
Applicant: HIKMA PHARMACEUTICALS USA INC
Approved: May 15, 2007 | RLD: No | RS: No | Type: RX